FAERS Safety Report 21209803 (Version 1)
Quarter: 2022Q3

REPORT INFORMATION
  Report Type: Spontaneous
  Country: US (occurrence: None)
  Receive Date: 20220813
  Receipt Date: 20220813
  Transmission Date: 20221027
  Serious: Yes (Other)
  Sender: FDA-Public Use
  Company Number: 2022A280189

PATIENT
  Age: 65 Year
  Sex: Female

DRUGS (2)
  1. BUDESONIDE [Suspect]
     Active Substance: BUDESONIDE
     Indication: Asthma
     Route: 055
     Dates: start: 201709, end: 202207
  2. ARFORMOTEROL TARTRATE [Concomitant]
     Active Substance: ARFORMOTEROL TARTRATE

REACTIONS (16)
  - Pneumonia [Unknown]
  - COVID-19 [Recovered/Resolved]
  - Ear swelling [Recovering/Resolving]
  - Abdominal pain upper [Recovering/Resolving]
  - Pain in jaw [Recovering/Resolving]
  - Periorbital pain [Recovering/Resolving]
  - Dizziness [Recovering/Resolving]
  - Sleep disorder [Recovering/Resolving]
  - Dysphonia [Recovering/Resolving]
  - Throat tightness [Recovering/Resolving]
  - Skin burning sensation [Unknown]
  - Dry mouth [Recovering/Resolving]
  - Dysphagia [Recovering/Resolving]
  - Dysgeusia [Recovering/Resolving]
  - Heart rate irregular [Unknown]
  - Rash pruritic [Unknown]

NARRATIVE: CASE EVENT DATE: 20200101
